FAERS Safety Report 17910195 (Version 1)
Quarter: 2020Q2

REPORT INFORMATION
  Report Type: Spontaneous
  Country: CO (occurrence: CO)
  Receive Date: 20200617
  Receipt Date: 20200617
  Transmission Date: 20200714
  Serious: Yes (Other)
  Sender: FDA-Public Use
  Company Number: CO-BIOMARINAP-CO-2020-130689

PATIENT
  Sex: Female
  Weight: 24.7 kg

DRUGS (1)
  1. VIMIZIM [Suspect]
     Active Substance: ELOSULFASE ALFA
     Indication: MUCOPOLYSACCHARIDOSIS IV
     Dosage: 24 MILLIGRAM, QW
     Route: 042
     Dates: start: 2015

REACTIONS (1)
  - Deafness [Unknown]

NARRATIVE: CASE EVENT DATE: 2019
